FAERS Safety Report 14069397 (Version 1)
Quarter: 2017Q4

REPORT INFORMATION
  Report Type: Spontaneous
  Country: GB (occurrence: GB)
  Receive Date: 20171010
  Receipt Date: 20171010
  Transmission Date: 20180321
  Serious: Yes (Other)
  Sender: FDA-Public Use
  Company Number: GB-TEVA-812017ACC

PATIENT
  Age: 64 Year
  Sex: Male

DRUGS (1)
  1. LINEZOLID. [Suspect]
     Active Substance: LINEZOLID
     Indication: ENTEROCOCCAL INFECTION
     Route: 048
     Dates: start: 20170706, end: 20170801

REACTIONS (1)
  - Blood disorder [Recovered/Resolved]

NARRATIVE: CASE EVENT DATE: 20170731
